FAERS Safety Report 16433973 (Version 1)
Quarter: 2019Q2

REPORT INFORMATION
  Report Type: Spontaneous
  Country: IL (occurrence: IL)
  Receive Date: 20190614
  Receipt Date: 20190614
  Transmission Date: 20190711
  Serious: Yes (Hospitalization)
  Sender: FDA-Public Use
  Company Number: IL-BIOTEST PHARMACEUTICALS CORPORATION-IL-2019ADM000008

PATIENT
  Age: 69 Year
  Sex: Female

DRUGS (10)
  1. HUMAN IMMUNOGLOBULIN [Suspect]
     Active Substance: HUMAN IMMUNOGLOBULIN G
     Indication: SCLERODERMA
     Dosage: 400 MG/KG/DAY OVER 5 DAYS
  2. PLAQUENIL                          /00072602/ [Concomitant]
     Active Substance: HYDROXYCHLOROQUINE DIPHOSPHATE
     Indication: PRODUCT USED FOR UNKNOWN INDICATION
     Dosage: UNK
  3. METHOTREXATE. [Concomitant]
     Active Substance: METHOTREXATE
     Indication: PRODUCT USED FOR UNKNOWN INDICATION
     Dosage: UNK
  4. TRIBEMIN [Concomitant]
     Active Substance: CYANOCOBALAMIN\PYRIDOXINE HYDROCHLORIDE\THIAMINE
     Indication: PRODUCT USED FOR UNKNOWN INDICATION
     Dosage: UNK
  5. CONTROLOC [Concomitant]
     Active Substance: PANTOPRAZOLE SODIUM
     Indication: PRODUCT USED FOR UNKNOWN INDICATION
     Dosage: UNK
  6. FERROUS SULFATE. [Concomitant]
     Active Substance: FERROUS SULFATE
     Indication: PRODUCT USED FOR UNKNOWN INDICATION
     Dosage: UNK
  7. PREDNISONE. [Concomitant]
     Active Substance: PREDNISONE
     Indication: PRODUCT USED FOR UNKNOWN INDICATION
     Dosage: UNK
  8. CIPROFLOXACIN. [Concomitant]
     Active Substance: CIPROFLOXACIN
     Indication: PRODUCT USED FOR UNKNOWN INDICATION
     Dosage: UNK
  9. TRACLEER [Concomitant]
     Active Substance: BOSENTAN
     Indication: PRODUCT USED FOR UNKNOWN INDICATION
     Dosage: UNK
  10. FOLIC ACID. [Concomitant]
     Active Substance: FOLIC ACID
     Indication: PRODUCT USED FOR UNKNOWN INDICATION
     Dosage: UNK

REACTIONS (2)
  - Acute myocardial infarction [Recovered/Resolved]
  - Pulmonary oedema [None]
